FAERS Safety Report 19746494 (Version 2)
Quarter: 2021Q3

REPORT INFORMATION
  Report Type: Spontaneous
  Country: BR (occurrence: BR)
  Receive Date: 20210825
  Receipt Date: 20210913
  Transmission Date: 20211014
  Serious: Yes (Other)
  Sender: FDA-Public Use
  Company Number: NVSC2021BR189583

PATIENT
  Sex: Male
  Weight: 70 kg

DRUGS (10)
  1. RITALINA LA [Suspect]
     Active Substance: METHYLPHENIDATE HYDROCHLORIDE
     Indication: ATTENTION DEFICIT HYPERACTIVITY DISORDER
     Dosage: QD (1 YEAR AGO)
     Route: 065
  2. RITALINA LA [Suspect]
     Active Substance: METHYLPHENIDATE HYDROCHLORIDE
     Dosage: 6 DF, TID (STARTED IN EARLY 2021 AND STOPPED IN 2021, ROUTE: ORAL AND INHALATION)
     Route: 065
     Dates: start: 2021, end: 2021
  3. RITALINA LA [Suspect]
     Active Substance: METHYLPHENIDATE HYDROCHLORIDE
     Dosage: 6 DF, TID (ROUTE: ORAL AND INHALATION)
     Route: 065
     Dates: start: 202107
  4. RIVOTRIL [Concomitant]
     Active Substance: CLONAZEPAM
     Indication: INSOMNIA
     Dosage: 1 DF (STARTED IN JUN 2020 OR JUL 2020, FREQUENCY: WHEN IT NECESSARY)
     Route: 048
     Dates: start: 202106
  5. RITALINA LA [Suspect]
     Active Substance: METHYLPHENIDATE HYDROCHLORIDE
     Dosage: 8 DF, TID (STARTED IN 2021 AND STOPPED IN JUL 2021, ROUTE: ORAL AND INHALATION)
     Route: 065
     Dates: start: 2021, end: 202107
  6. RITALINA LA [Suspect]
     Active Substance: METHYLPHENIDATE HYDROCHLORIDE
     Dosage: 2 DF, QD (STARTED IN JUN 2020 OR JUL 2020 AND STOPPED AFTER 2 MONTHS)
     Route: 048
     Dates: start: 202006
  7. RITALINA LA [Suspect]
     Active Substance: METHYLPHENIDATE HYDROCHLORIDE
     Dosage: 4 DF, TID (STOPPED IN EARLY 2021)
     Route: 048
     Dates: start: 202008, end: 2021
  8. RITALINA LA [Suspect]
     Active Substance: METHYLPHENIDATE HYDROCHLORIDE
     Dosage: 15 DF (STARTED IN EARLY 2021, ROUTE: ORAL AND INHALATION)
     Route: 065
     Dates: start: 2021
  9. METHYLPHENIDATE. [Suspect]
     Active Substance: METHYLPHENIDATE
     Indication: ATTENTION DEFICIT HYPERACTIVITY DISORDER
     Dosage: (STARTED 1 YEAR AGO)
     Route: 065
  10. CODEINE PHOSPHATE [Concomitant]
     Active Substance: CODEINE PHOSPHATE
     Indication: INSOMNIA
     Dosage: 1 DF (WHEN IT NECESSARY)
     Route: 065
     Dates: start: 202009

REACTIONS (9)
  - Overdose [Recovered/Resolved]
  - Drug abuse [Not Recovered/Not Resolved]
  - Thirst [Not Recovered/Not Resolved]
  - Incorrect route of product administration [Not Recovered/Not Resolved]
  - Heart rate increased [Not Recovered/Not Resolved]
  - Drug dependence [Not Recovered/Not Resolved]
  - Pollakiuria [Not Recovered/Not Resolved]
  - Sleep disorder [Not Recovered/Not Resolved]
  - Decreased appetite [Not Recovered/Not Resolved]

NARRATIVE: CASE EVENT DATE: 2020
